FAERS Safety Report 6177099-8 (Version None)
Quarter: 2009Q2

REPORT INFORMATION
  Report Type: 
  Country: None (occurrence: None)
  Receive Date: 20090504
  Receipt Date: 20090430
  Transmission Date: 20091009
  Serious: Yes (Other)
  Sender: FDA-Public Use
  Company Number: US-JNJFOC-20090400357

PATIENT
  Sex: Male
  Weight: 92.99 kg

DRUGS (5)
  1. LEVAQUIN [Suspect]
     Indication: SINUSITIS
     Route: 048
  2. LEVAQUIN [Suspect]
     Indication: BRONCHITIS
     Route: 048
  3. NORVASC [Concomitant]
     Indication: HYPERTENSION
     Route: 048
  4. BYSTOLIC [Concomitant]
     Indication: HYPERTENSION
     Route: 048
  5. AVODART [Concomitant]
     Indication: PROSTATOMEGALY
     Route: 048

REACTIONS (5)
  - APHONIA [None]
  - COUGH [None]
  - INSOMNIA [None]
  - OROPHARYNGEAL PAIN [None]
  - RESPIRATORY TRACT INFECTION FUNGAL [None]
